FAERS Safety Report 4934775-X (Version None)
Quarter: 2006Q1

REPORT INFORMATION
  Report Type: 
  Country: None (occurrence: None)
  Receive Date: 20060307
  Receipt Date: 20050415
  Transmission Date: 20060701
  Serious: Yes (Death, Hospitalization)
  Sender: FDA-Public Use
  Company Number: US-MERCK-0504USA03331

PATIENT
  Age: 79 Year
  Sex: Female
  Weight: 106 kg

DRUGS (7)
  1. VIOXX [Suspect]
     Indication: RHEUMATOID ARTHRITIS
     Route: 048
     Dates: start: 20000201, end: 20040930
  2. VIOXX [Suspect]
     Route: 048
     Dates: end: 19990801
  3. VIOXX [Suspect]
     Route: 048
     Dates: start: 20010701
  4. ADVIL [Concomitant]
     Route: 065
  5. MOTRIN [Concomitant]
     Route: 065
  6. METHOTREXATE [Concomitant]
     Route: 065
     Dates: start: 19991101
  7. FOLIC ACID [Concomitant]
     Route: 065

REACTIONS (6)
  - ACUTE MYOCARDIAL INFARCTION [None]
  - ANGINA PECTORIS [None]
  - ARTHRALGIA [None]
  - CORONARY ARTERY DISEASE [None]
  - SYNOVITIS [None]
  - TENDONITIS [None]
